FAERS Safety Report 9923701 (Version 1)
Quarter: 2014Q1

REPORT INFORMATION
  Report Type: Spontaneous
  Country: US (occurrence: US)
  Receive Date: 20140225
  Receipt Date: 20140225
  Transmission Date: 20141002
  Serious: No
  Sender: FDA-Public Use
  Company Number: US-AMGEN-USASP2013091591

PATIENT
  Age: 40 Year
  Sex: Female

DRUGS (4)
  1. ENBREL [Suspect]
     Indication: RHEUMATOID ARTHRITIS
     Dosage: 50 MG, QWK
     Route: 065
     Dates: start: 20120914, end: 201303
  2. HUMIRA [Concomitant]
     Dosage: 40 MG, Q2WK
     Dates: start: 201303
  3. LEFLUNOMIDE [Concomitant]
     Dosage: 10 MG, QD, DURATION 6 MOS
  4. PLAQUENIL                          /00072602/ [Concomitant]
     Dosage: 150 MG, QD

REACTIONS (6)
  - Rash macular [Recovered/Resolved]
  - Contusion [Recovered/Resolved]
  - Injection site swelling [Recovered/Resolved]
  - Injection site reaction [Recovered/Resolved]
  - Injection site erythema [Recovered/Resolved]
  - Injection site warmth [Recovered/Resolved]
